FAERS Safety Report 18997022 (Version 2)
Quarter: 2022Q2

REPORT INFORMATION
  Report Type: Report from Study
  Country: JP (occurrence: JP)
  Receive Date: 20210311
  Receipt Date: 20220621
  Transmission Date: 20220721
  Serious: Yes (Other)
  Sender: FDA-Public Use
  Company Number: JP-RECORDATI RARE DISEASES INC.-2021000822

PATIENT
  Sex: Male
  Weight: 1.13 kg

DRUGS (14)
  1. NEOPROFEN [Suspect]
     Active Substance: IBUPROFEN LYSINE
     Indication: Patent ductus arteriosus
     Dosage: 11 MILLIGRAM, QD
     Route: 042
     Dates: start: 20200723, end: 20200723
  2. NEOPROFEN [Suspect]
     Active Substance: IBUPROFEN LYSINE
     Dosage: 6 MILLIGRAM, QD
     Route: 042
     Dates: start: 20200724, end: 20200724
  3. NEOPROFEN [Suspect]
     Active Substance: IBUPROFEN LYSINE
     Dosage: 6 MILLIGRAM, QD
     Route: 042
     Dates: start: 20200725, end: 20200725
  4. DEXTROSE [Concomitant]
     Active Substance: DEXTROSE
     Indication: Blood glucose
     Dosage: UNKNOWN
     Route: 065
     Dates: start: 20200722, end: 20200724
  5. PLEAMIN P [Concomitant]
     Indication: Parenteral nutrition
     Dosage: UNKNOWN
     Route: 065
     Dates: start: 20200722, end: 20200724
  6. CALCIUM GLUCONATE [Concomitant]
     Active Substance: CALCIUM GLUCONATE
     Indication: Blood calcium
     Dosage: UNKNOWN
     Route: 065
     Dates: start: 20200722, end: 20200724
  7. OTSUKA MV [Concomitant]
     Indication: Vitamin supplementation
     Dosage: UNKNOWN
     Route: 065
     Dates: start: 20200723, end: 20200723
  8. HEPARIN SODIUM [Concomitant]
     Active Substance: HEPARIN SODIUM
     Indication: Thrombosis prophylaxis
     Dosage: UNKNOWN
     Route: 065
     Dates: start: 20200722, end: 20200724
  9. DEXTROSE [Concomitant]
     Active Substance: DEXTROSE
     Indication: Blood glucose
     Dosage: UNK
     Route: 065
     Dates: start: 20200722, end: 20200724
  10. MEYLON [Concomitant]
     Active Substance: SODIUM BICARBONATE
     Indication: Metabolic acidosis
     Dosage: UNK
     Route: 065
     Dates: start: 20200723, end: 20200724
  11. BIFIDOBACTERIUM LONGUM [Concomitant]
     Active Substance: BIFIDOBACTERIUM LONGUM
     Indication: Dysbiosis
     Dosage: UNK
     Route: 065
     Dates: start: 20200722, end: 20200724
  12. SURFACTEN [Concomitant]
     Indication: Neonatal respiratory distress syndrome
     Dosage: UNK
     Route: 065
     Dates: start: 20200722, end: 20200723
  13. ELEJECT [Concomitant]
     Indication: Trace element deficiency
     Dosage: UNK
     Route: 065
     Dates: start: 20200724, end: 20200724
  14. CAFFEINE [Concomitant]
     Active Substance: CAFFEINE
     Indication: Apnoeic attack
     Dosage: UNK
     Route: 065
     Dates: start: 20200724, end: 20200724

REACTIONS (4)
  - Hyponatraemia [Recovered/Resolved]
  - Hyperbilirubinaemia [Recovering/Resolving]
  - Metabolic acidosis [Recovering/Resolving]
  - Urine output decreased [Recovered/Resolved]

NARRATIVE: CASE EVENT DATE: 20200723
